FAERS Safety Report 7503480-8 (Version None)
Quarter: 2011Q2

REPORT INFORMATION
  Report Type: 
  Country: None (occurrence: None)
  Receive Date: 20110525
  Receipt Date: 20110519
  Transmission Date: 20111010
  Serious: Yes (Hospitalization)
  Sender: FDA-Public Use
  Company Number: BR-ROCHE-760089

PATIENT
  Sex: Female
  Weight: 69 kg

DRUGS (17)
  1. TOCILIZUMAB [Suspect]
     Dosage: DOSE: 8 MG/ML; FORM: INFUSION, ROUTE: ENDOVENOUS. FREQUENCY: EVERY 28 DAYS.
     Route: 050
     Dates: start: 20100401
  2. TOCILIZUMAB [Suspect]
     Dosage: DOSE: 8 MG/ML; FORM: INFUSION, ROUTE: ENDOVENOUS. FREQUENCY: EVERY 28 DAYS.
     Route: 050
     Dates: start: 20100901
  3. GLYBURIDE [Concomitant]
     Indication: DIABETES MELLITUS
  4. PREDNISONE [Concomitant]
  5. TOCILIZUMAB [Suspect]
     Dosage: DOSE: 8 MG/ML; FORM: INFUSION, ROUTE: ENDOVENOUS. FREQUENCY: EVERY 28 DAYS.
     Route: 050
     Dates: start: 20100330
  6. TOCILIZUMAB [Suspect]
     Dosage: DOSE: 8 MG/ML; FORM: INFUSION, ROUTE: ENDOVENOUS. FREQUENCY: EVERY 28 DAYS.
     Route: 050
     Dates: start: 20100501
  7. TOCILIZUMAB [Suspect]
     Dosage: DOSE: 8 MG/ML; FORM: INFUSION, ROUTE: ENDOVENOUS. FREQUENCY: EVERY 28 DAYS.
     Route: 050
     Dates: start: 20101101
  8. TOCILIZUMAB [Suspect]
     Dosage: DOSE: 8 MG/ML; FORM: INFUSION, ROUTE: ENDOVENOUS. FREQUENCY: EVERY 28 DAYS.
     Route: 050
     Dates: start: 20100601
  9. TOCILIZUMAB [Suspect]
     Dosage: DOSE: 8 MG/ML; FORM: INFUSION, ROUTE: ENDOVENOUS. FREQUENCY: EVERY 28 DAYS.
     Route: 050
     Dates: start: 20110501
  10. FOLIC ACID [Concomitant]
  11. SIMVASTATIN [Concomitant]
  12. TOCILIZUMAB [Suspect]
     Dosage: DOSE: 8 MG/ML; FORM: INFUSION, ROUTE: ENDOVENOUS. FREQUENCY: EVERY 28 DAYS.
     Route: 050
     Dates: start: 20100814
  13. TOCILIZUMAB [Suspect]
     Indication: RHEUMATOID ARTHRITIS
     Dosage: DOSE: 8 MG/ML; FORM: INFUSION, ROUTE: ENDOVENOUS. FREQUENCY: EVERY 28 DAYS.
     Route: 050
     Dates: start: 20100228
  14. TOCILIZUMAB [Suspect]
     Dosage: DOSE: 8 MG/ML; FORM: INFUSION, ROUTE: ENDOVENOUS. FREQUENCY: EVERY 28 DAYS.
     Route: 050
     Dates: start: 20101001
  15. TOCILIZUMAB [Suspect]
     Dosage: DOSE: 8 MG/ML; FORM: INFUSION, ROUTE: ENDOVENOUS. FREQUENCY: EVERY 28 DAYS.
     Route: 050
     Dates: start: 20110401
  16. METFORMIN HCL [Concomitant]
     Indication: DIABETES MELLITUS
  17. METHOTREXATE [Concomitant]

REACTIONS (4)
  - RHEUMATOID ARTHRITIS [None]
  - DRUG INEFFECTIVE [None]
  - SKIN DISCOLOURATION [None]
  - ARTHROPATHY [None]
